FAERS Safety Report 10032589 (Version 5)
Quarter: 2018Q4

REPORT INFORMATION
  Report Type: Report from Study
  Country: US (occurrence: US)
  Receive Date: 20140324
  Receipt Date: 20181220
  Transmission Date: 20190204
  Serious: Yes (Other)
  Sender: FDA-Public Use
  Company Number: US-TEVA-470325USA

PATIENT
  Age: 25 Year
  Sex: Female

DRUGS (2)
  1. BIRTH CONTROL PILLS [Concomitant]
     Active Substance: UNSPECIFIED INGREDIENT
  2. CLARAVIS [Suspect]
     Active Substance: ISOTRETINOIN
     Indication: KERATOSIS FOLLICULAR
     Dosage: 80 MILLIGRAM DAILY;
     Route: 048
     Dates: start: 20120604, end: 201402

REACTIONS (2)
  - Unintended pregnancy [Unknown]
  - Maternal exposure during pregnancy [Unknown]

NARRATIVE: CASE EVENT DATE: 20140305
